FAERS Safety Report 17817858 (Version 1)
Quarter: 2020Q2

REPORT INFORMATION
  Report Type: Spontaneous
  Country: US (occurrence: US)
  Receive Date: 20200522
  Receipt Date: 20200522
  Transmission Date: 20200714
  Serious: No
  Sender: FDA-Public Use
  Company Number: US-PFIZER INC-2020198304

PATIENT
  Age: 52 Year
  Sex: Female
  Weight: 74.84 kg

DRUGS (5)
  1. ELIQUIS [Suspect]
     Active Substance: APIXABAN
     Indication: EMBOLISM VENOUS
     Dosage: 5MG EACH DAY
     Route: 048
     Dates: start: 20200415
  2. IBRANCE [Suspect]
     Active Substance: PALBOCICLIB
     Indication: BONE CANCER
     Dosage: 100 MILLIGRAM
     Route: 048
  3. LETROZOLE. [Suspect]
     Active Substance: LETROZOLE
     Indication: BONE CANCER
  4. LETROZOLE. [Suspect]
     Active Substance: LETROZOLE
     Indication: BREAST CANCER
     Dosage: 2.5 MG CYCLES OF 21 DAYS ON AND 7 DAYS OFF
     Route: 048
     Dates: start: 20200422
  5. IBRANCE [Suspect]
     Active Substance: PALBOCICLIB
     Indication: BREAST CANCER
     Dosage: 125 MILLIGRAM EACH DAY FOR 21 DAYS AND THEN OFF FOR A WEEK
     Route: 048
     Dates: start: 20200422

REACTIONS (3)
  - Drug eruption [Unknown]
  - Bone disorder [Unknown]
  - Blood test abnormal [Unknown]

NARRATIVE: CASE EVENT DATE: 20200512
